FAERS Safety Report 19513448 (Version 3)
Quarter: 2021Q3

REPORT INFORMATION
  Report Type: Report from Study
  Country: DE (occurrence: DE)
  Receive Date: 20210709
  Receipt Date: 20210804
  Transmission Date: 20211014
  Serious: Yes (Other)
  Sender: FDA-Public Use
  Company Number: DE-TAKEDA-2021TUS041751

PATIENT
  Age: 8 Year
  Sex: Male
  Weight: 32 kg

DRUGS (11)
  1. ADVATE [Suspect]
     Active Substance: ANTIHEMOPHILIC FACTOR, HUMAN RECOMBINANT
     Indication: PROPHYLAXIS
     Dosage: 2000 INTERNATIONAL UNIT, QOD
     Route: 065
     Dates: start: 20120606, end: 20191113
  2. ADVATE [Suspect]
     Active Substance: ANTIHEMOPHILIC FACTOR, HUMAN RECOMBINANT
     Indication: FACTOR VIII DEFICIENCY
     Dosage: 2000 INTERNATIONAL UNIT JEDEN 2 TAG
     Route: 065
     Dates: start: 20120606, end: 20191113
  3. ADVATE [Suspect]
     Active Substance: ANTIHEMOPHILIC FACTOR, HUMAN RECOMBINANT
     Indication: FACTOR VIII DEFICIENCY
     Dosage: 2000 INTERNATIONAL UNIT JEDEN 2 TAG
     Route: 065
     Dates: start: 20120606, end: 20191113
  4. ADVATE [Suspect]
     Active Substance: ANTIHEMOPHILIC FACTOR, HUMAN RECOMBINANT
     Indication: PROPHYLAXIS
     Dosage: 2000 INTERNATIONAL UNIT, QOD
     Route: 065
     Dates: start: 20120606, end: 20191113
  5. KORTISON [Concomitant]
     Active Substance: CORTISONE ACETATE
     Dosage: 0.5 MILLIGRAM
     Route: 055
     Dates: start: 20130614
  6. SALBUTAMOL [Concomitant]
     Active Substance: ALBUTEROL
     Indication: BRONCHITIS
     Dosage: 100 MICROGRAM PRN
     Route: 055
     Dates: start: 20130114
  7. ADVATE [Suspect]
     Active Substance: ANTIHEMOPHILIC FACTOR, HUMAN RECOMBINANT
     Indication: PROPHYLAXIS
     Dosage: 2000 INTERNATIONAL UNIT, QOD
     Route: 065
     Dates: start: 20120606, end: 20191113
  8. KORTISON [Concomitant]
     Active Substance: CORTISONE ACETATE
     Indication: BRONCHITIS
     Dosage: 1 MILLIGRAM PRN
     Route: 055
     Dates: start: 20130114
  9. TETANUS TOXOID ADSORBED (VACCINE) [Concomitant]
     Active Substance: CLOSTRIDIUM TETANI TOXOID ANTIGEN (FORMALDEHYDE INACTIVATED)
     Indication: PROPHYLAXIS
     Dosage: UNK, SINGLE
     Route: 030
     Dates: start: 20190704, end: 20190704
  10. ADVATE [Suspect]
     Active Substance: ANTIHEMOPHILIC FACTOR, HUMAN RECOMBINANT
     Indication: FACTOR VIII DEFICIENCY
     Dosage: 2000 INTERNATIONAL UNIT JEDEN 2 TAG
     Route: 065
     Dates: start: 20120606, end: 20191113
  11. CORTISONE [Concomitant]
     Active Substance: CORTISONE
     Indication: BRONCHITIS
     Dosage: 1 MILLIGRAM
     Route: 050
     Dates: start: 20130114

REACTIONS (2)
  - Bone contusion [Recovered/Resolved]
  - Head injury [Recovered/Resolved]

NARRATIVE: CASE EVENT DATE: 20191113
